FAERS Safety Report 5079303-6 (Version None)
Quarter: 2006Q3

REPORT INFORMATION
  Report Type: 
  Country: None (occurrence: None)
  Receive Date: 20060720
  Receipt Date: 20050705
  Transmission Date: 20061208
  Serious: Yes (Hospitalization)
  Sender: FDA-Public Use
  Company Number: 2005100492

PATIENT
  Age: 48 Year
  Sex: Male

DRUGS (6)
  1. CELEBREX [Suspect]
     Indication: ILL-DEFINED DISORDER
     Dosage: 400 MG (200 MG, 2 IN 1 D)
     Dates: start: 20040401, end: 20041201
  2. LASIX [Concomitant]
  3. LISINOPRIL [Concomitant]
  4. NAPROXEN [Concomitant]
  5. METOPROLOL (METOPROLOL) [Concomitant]
  6. LIPITOR [Concomitant]

REACTIONS (1)
  - CEREBROVASCULAR ACCIDENT [None]
